FAERS Safety Report 9356432 (Version 3)
Quarter: 2013Q3

REPORT INFORMATION
  Report Type: Spontaneous
  Country: US (occurrence: US)
  Receive Date: 20130619
  Receipt Date: 20130807
  Transmission Date: 20140515
  Serious: No
  Sender: FDA-Public Use
  Company Number: US-009507513-1306USA007601

PATIENT
  Age: 24 Year
  Sex: Female
  Weight: 61.22 kg

DRUGS (2)
  1. NEXPLANON [Suspect]
     Indication: CONTRACEPTION
     Dosage: 68 MG ROD ONCE EVERY 3 YEARS
     Route: 059
     Dates: start: 20130614, end: 20130614
  2. NEXPLANON [Suspect]
     Dosage: 68 MG ROD ONCE EVERY 3 YEARS
     Route: 059
     Dates: start: 20130614

REACTIONS (3)
  - Device difficult to use [Recovered/Resolved]
  - Product quality issue [Unknown]
  - No adverse event [Unknown]
